FAERS Safety Report 24587276 (Version 1)
Quarter: 2024Q4

REPORT INFORMATION
  Report Type: Spontaneous
  Country: DZ (occurrence: DZ)
  Receive Date: 20241107
  Receipt Date: 20241107
  Transmission Date: 20250114
  Serious: Yes (Other)
  Sender: AMGEN
  Company Number: DZ-AMGEN-DZASP2024214752

PATIENT
  Age: 52 Year
  Sex: Female

DRUGS (3)
  1. KYPROLIS [Suspect]
     Active Substance: CARFILZOMIB
     Indication: Plasma cell myeloma
     Dosage: 27 MILLIGRAM/SQ. METER
     Route: 040
     Dates: start: 20231008, end: 202410
  2. DEXAMETHASONE [Concomitant]
     Active Substance: DEXAMETHASONE
     Indication: Plasma cell myeloma
     Dosage: 40 MILLIGRAM, QWK
     Route: 065
     Dates: start: 20231008
  3. LENALIDOMIDE [Concomitant]
     Active Substance: LENALIDOMIDE
     Indication: Plasma cell myeloma
     Dosage: 25 MILLIGRAM, Q3WK CYCLE
     Dates: start: 20231008

REACTIONS (1)
  - Immune thrombocytopenia [Not Recovered/Not Resolved]

NARRATIVE: CASE EVENT DATE: 20241001
